FAERS Safety Report 8511850-4 (Version None)
Quarter: 2012Q3

REPORT INFORMATION
  Report Type: 
  Country: None (occurrence: None)
  Receive Date: 20120716
  Receipt Date: 20120712
  Transmission Date: 20120928
  Serious: Yes (Death, Hospitalization)
  Sender: FDA-Public Use
  Company Number: PHHY2012BR047652

PATIENT
  Sex: Male

DRUGS (5)
  1. DILTIAZEM [Concomitant]
  2. RISPERIDONE [Concomitant]
  3. FORMOTEROL FUMARATE [Suspect]
     Dosage: UNK UKN, UNK
  4. FORMOTEROL FUMARATE [Suspect]
     Dosage: UNK UKN, UNK
  5. NEXIUM [Concomitant]

REACTIONS (5)
  - PLEURAL EFFUSION [None]
  - PNEUMONIA [None]
  - HYPERTENSION [None]
  - INFARCTION [None]
  - RESPIRATORY DISORDER [None]
